FAERS Safety Report 22309208 (Version 1)
Quarter: 2023Q2

REPORT INFORMATION
  Report Type: Spontaneous
  Country: US (occurrence: US)
  Receive Date: 20230511
  Receipt Date: 20230511
  Transmission Date: 20230721
  Serious: No
  Sender: FDA-Public Use
  Company Number: US-BIOGEN-2023BI01193769

PATIENT
  Age: 53 Year
  Sex: Female

DRUGS (14)
  1. VUMERITY [Suspect]
     Active Substance: DIROXIMEL FUMARATE
     Indication: Multiple sclerosis
     Route: 050
     Dates: start: 20230304, end: 20230310
  2. VUMERITY [Suspect]
     Active Substance: DIROXIMEL FUMARATE
     Route: 050
     Dates: start: 20230311
  3. VUMERITY [Suspect]
     Active Substance: DIROXIMEL FUMARATE
     Route: 050
     Dates: start: 20230302, end: 20230403
  4. BACLOFEN [Concomitant]
     Active Substance: BACLOFEN
     Route: 050
  5. LOSARTAN [Concomitant]
     Active Substance: LOSARTAN
     Route: 050
  6. NALTREXONE [Concomitant]
     Active Substance: NALTREXONE
     Route: 050
  7. PROGESTERONE [Concomitant]
     Active Substance: PROGESTERONE
     Route: 050
  8. BENADRYL [Concomitant]
     Active Substance: DIPHENHYDRAMINE HYDROCHLORIDE
     Route: 050
  9. DILTIAZEM [Concomitant]
     Active Substance: DILTIAZEM
     Route: 050
  10. DULOXETINE [Concomitant]
     Active Substance: DULOXETINE
     Route: 050
  11. SYNTHROID [Concomitant]
     Active Substance: LEVOTHYROXINE SODIUM
     Route: 050
  12. VIVELLE-DOT [Concomitant]
     Active Substance: ESTRADIOL
     Route: 050
  13. ZOLPIDEM [Concomitant]
     Active Substance: ZOLPIDEM TARTRATE
     Route: 050
  14. ATOMOXETINE [Concomitant]
     Active Substance: ATOMOXETINE
     Route: 050

REACTIONS (7)
  - Fatigue [Not Recovered/Not Resolved]
  - Abdominal discomfort [Recovered/Resolved]
  - Nausea [Not Recovered/Not Resolved]
  - Abdominal pain [Not Recovered/Not Resolved]
  - Diarrhoea [Recovered/Resolved]
  - Flushing [Recovered/Resolved]
  - Vomiting [Recovered/Resolved]

NARRATIVE: CASE EVENT DATE: 20230304
